FAERS Safety Report 20952014 (Version 1)
Quarter: 2022Q2

REPORT INFORMATION
  Report Type: Report from Study
  Country: ES (occurrence: ES)
  Receive Date: 20220613
  Receipt Date: 20220613
  Transmission Date: 20220721
  Serious: Yes (Other)
  Sender: FDA-Public Use
  Company Number: ES-TAKEDA-2022TEU004279

PATIENT
  Sex: Female

DRUGS (2)
  1. MESALAMINE [Suspect]
     Active Substance: MESALAMINE
     Indication: Colitis ulcerative
     Dosage: 4 GRAM, QD
     Route: 065
     Dates: start: 202104, end: 202202
  2. MESALAMINE [Suspect]
     Active Substance: MESALAMINE
     Dosage: 2 GRAM, QD
     Route: 065
     Dates: start: 202202

REACTIONS (2)
  - Colitis ulcerative [Recovered/Resolved]
  - Alopecia [Recovering/Resolving]

NARRATIVE: CASE EVENT DATE: 20220201
